FAERS Safety Report 5021999-9 (Version None)
Quarter: 2006Q2

REPORT INFORMATION
  Report Type: 
  Country: None (occurrence: None)
  Receive Date: 20060605
  Receipt Date: 20060518
  Transmission Date: 20061013
  Serious: No
  Sender: FDA-Public Use
  Company Number: US200605004426

PATIENT
  Sex: Male

DRUGS (2)
  1. ZYPREXA [Suspect]
     Dosage: SEE IMAGE
     Route: 048
     Dates: start: 20060101
  2. CYMBALTA [Suspect]
     Dosage: 60 MG, ORAL
     Route: 048
     Dates: start: 20060101

REACTIONS (1)
  - EPISTAXIS [None]
